FAERS Safety Report 7525931-5 (Version None)
Quarter: 2011Q2

REPORT INFORMATION
  Report Type: 
  Country: None (occurrence: None)
  Receive Date: 20110606
  Receipt Date: 20110531
  Transmission Date: 20111010
  Serious: No
  Sender: FDA-Public Use
  Company Number: US-TEVA-284469USA

PATIENT
  Sex: Female
  Weight: 58.112 kg

DRUGS (5)
  1. PLAN B ONE-STEP [Suspect]
     Indication: POST COITAL CONTRACEPTION
     Dosage: 1.5 MILLIGRAM;
     Route: 048
     Dates: start: 20110520, end: 20110520
  2. BIOTIN [Concomitant]
     Indication: SUPPLEMENTATION THERAPY
  3. BIOTIN [Concomitant]
  4. FLAXID [Concomitant]
     Indication: GASTROOESOPHAGEAL REFLUX DISEASE
  5. BIOTIN [Concomitant]

REACTIONS (6)
  - NAUSEA [None]
  - HEADACHE [None]
  - ABDOMINAL PAIN LOWER [None]
  - VULVOVAGINAL PAIN [None]
  - BREAST TENDERNESS [None]
  - MENSTRUATION IRREGULAR [None]
